FAERS Safety Report 4747472-0 (Version None)
Quarter: 2005Q3

REPORT INFORMATION
  Report Type: 
  Country: None (occurrence: None)
  Receive Date: 20050815
  Receipt Date: 20050419
  Transmission Date: 20060218
  Serious: No
  Sender: FDA-Public Use
  Company Number: USA050496032

PATIENT
  Age: 77 Year
  Sex: Male

DRUGS (4)
  1. CIALIS [Suspect]
     Dosage: 10 MG
     Dates: start: 20041001
  2. METOPROLOL [Concomitant]
  3. HYDROCHLOROTHIAZIDE [Concomitant]
  4. HYTRIN [Concomitant]

REACTIONS (1)
  - FLUSHING [None]
